FAERS Safety Report 12483623 (Version 2)
Quarter: 2016Q2

REPORT INFORMATION
  Report Type: Report from Study
  Country: US (occurrence: US)
  Receive Date: 20160621
  Receipt Date: 20160629
  Transmission Date: 20160815
  Serious: Yes (Hospitalization, Other)
  Sender: FDA-Public Use
  Company Number: US-AMGEN-USASL2016077959

PATIENT
  Age: 70 Year
  Sex: Male
  Weight: 109.75 kg

DRUGS (1)
  1. REPATHA [Suspect]
     Active Substance: EVOLOCUMAB
     Indication: TYPE V HYPERLIPIDAEMIA
     Dosage: 140 MG, Q2WK
     Route: 065
     Dates: start: 20160316

REACTIONS (2)
  - Pharyngitis streptococcal [Unknown]
  - Dizziness [Unknown]

NARRATIVE: CASE EVENT DATE: 20160607
